FAERS Safety Report 4677161-2 (Version None)
Quarter: 2005Q2

REPORT INFORMATION
  Report Type: 
  Country: None (occurrence: None)
  Receive Date: 20050526
  Receipt Date: 20050512
  Transmission Date: 20051028
  Serious: Yes (Other)
  Sender: FDA-Public Use
  Company Number: DSA_26430-2005

PATIENT
  Age: 56 Year
  Sex: Male

DRUGS (1)
  1. TEVETEN [Suspect]
     Dosage: DF UNK PO
     Route: 048

REACTIONS (2)
  - JAUNDICE [None]
  - LIVER FUNCTION TEST ABNORMAL [None]
